FAERS Safety Report 20877116 (Version 2)
Quarter: 2022Q3

REPORT INFORMATION
  Report Type: Report from Study
  Country: JP (occurrence: JP)
  Receive Date: 20220526
  Receipt Date: 20220819
  Transmission Date: 20221027
  Serious: Yes (Hospitalization, Other)
  Sender: FDA-Public Use
  Company Number: JP-RECORDATI RARE DISEASE INC.-2021002110

PATIENT
  Age: 0 Year
  Sex: Male
  Weight: .694 kg

DRUGS (7)
  1. NEOPROFEN [Suspect]
     Active Substance: IBUPROFEN LYSINE
     Indication: Patent ductus arteriosus
     Dosage: 7 MILLIGRAM, QD
     Route: 042
     Dates: start: 20200507, end: 20200507
  2. FENTANYL CITRATE [Concomitant]
     Active Substance: FENTANYL CITRATE
     Indication: Analgesic therapy
     Dosage: UNK UNK, UNK
     Route: 042
     Dates: start: 20200505, end: 20200604
  3. FENTANYL CITRATE [Concomitant]
     Active Substance: FENTANYL CITRATE
     Indication: Sedation
  4. FOSFLUCONAZOLE [Concomitant]
     Active Substance: FOSFLUCONAZOLE
     Indication: Infection prophylaxis
     Dosage: UNK UNK, UNK
     Route: 042
     Dates: start: 20200505, end: 20200617
  5. PHENOBARBITAL SODIUM [Concomitant]
     Active Substance: PHENOBARBITAL SODIUM
     Indication: Sedation
     Dosage: UNK UNK, UNK
     Route: 042
     Dates: start: 20200507, end: 20200524
  6. VICCILLIN [AMPICILLIN SODIUM] [Concomitant]
     Indication: Congenital infection
     Dosage: UNK UNK, UNK
     Route: 042
     Dates: start: 20200505, end: 20200508
  7. SURFACTEN [Concomitant]
     Indication: Neonatal respiratory distress syndrome
     Dosage: UNK UNK, UNK
     Route: 039
     Dates: start: 20200505, end: 20200507

REACTIONS (7)
  - Meconium ileus [Recovering/Resolving]
  - Gastrointestinal perforation [Unknown]
  - Renal disorder [Recovering/Resolving]
  - Device related infection [Recovered/Resolved]
  - Bronchopulmonary dysplasia [Recovering/Resolving]
  - Osteopenia [Not Recovered/Not Resolved]
  - Intraventricular haemorrhage [Recovering/Resolving]

NARRATIVE: CASE EVENT DATE: 20200507
